FAERS Safety Report 8265570 (Version 4)
Quarter: 2013Q4

REPORT INFORMATION
  Report Type: Spontaneous
  Country: US (occurrence: US)
  Receive Date: 20111128
  Receipt Date: 20131211
  Transmission Date: 20140711
  Serious: Yes (Hospitalization, Other)
  Sender: FDA-Public Use
  Company Number: US-ASTRAZENECA-2009SE19292

PATIENT
  Age: 20586 Day
  Sex: Female
  Weight: 68 kg

DRUGS (13)
  1. SEROQUEL XR [Suspect]
     Indication: BIPOLAR DISORDER
     Route: 048
     Dates: start: 2008
  2. SEROQUEL XR [Suspect]
     Indication: STEVENS-JOHNSON SYNDROME
     Route: 048
     Dates: start: 2008
  3. SEROQUEL XR [Suspect]
     Indication: BIPOLAR DISORDER
     Dosage: 150 MG  AND 300 MG
     Route: 048
  4. SEROQUEL XR [Suspect]
     Indication: STEVENS-JOHNSON SYNDROME
     Dosage: 150 MG  AND 300 MG
     Route: 048
  5. SEROQUEL XR [Suspect]
     Indication: BIPOLAR DISORDER
     Dosage: ?
     Route: 048
     Dates: start: 20131201
  6. SEROQUEL XR [Suspect]
     Indication: STEVENS-JOHNSON SYNDROME
     Dosage: ?
     Route: 048
     Dates: start: 20131201
  7. SEROQUEL XR [Suspect]
     Indication: BIPOLAR DISORDER
     Route: 048
  8. SEROQUEL XR [Suspect]
     Indication: STEVENS-JOHNSON SYNDROME
     Route: 048
  9. SEROQUEL XR [Suspect]
     Indication: BIPOLAR DISORDER
     Route: 048
     Dates: start: 2010, end: 20131130
  10. SEROQUEL XR [Suspect]
     Indication: STEVENS-JOHNSON SYNDROME
     Route: 048
     Dates: start: 2010, end: 20131130
  11. LISINOPRIL [Suspect]
     Indication: HYPERTENSION
     Route: 048
     Dates: start: 2012
  12. CLONIPINE [Concomitant]
     Indication: PANIC ATTACK
  13. VEGRA [Concomitant]

REACTIONS (21)
  - Suicidal ideation [Unknown]
  - No therapeutic response [Unknown]
  - Depression [Unknown]
  - Mania [Unknown]
  - Mental impairment [Unknown]
  - Agoraphobia [Unknown]
  - Adverse event [Unknown]
  - Convulsion [Unknown]
  - Decreased appetite [Unknown]
  - Insomnia [Unknown]
  - Feeling abnormal [Unknown]
  - Affect lability [Unknown]
  - Panic reaction [Unknown]
  - Fear [Unknown]
  - Condition aggravated [Unknown]
  - Fatigue [Unknown]
  - Somnolence [Unknown]
  - Drug ineffective [Unknown]
  - Off label use [Unknown]
  - Intentional drug misuse [Unknown]
  - Drug dose omission [Unknown]
